FAERS Safety Report 17204599 (Version 1)
Quarter: 2019Q4

REPORT INFORMATION
  Report Type: Report from Study
  Country: US (occurrence: US)
  Receive Date: 20191226
  Receipt Date: 20191226
  Transmission Date: 20200122
  Serious: Yes (Other)
  Sender: FDA-Public Use
  Company Number: NVSC2019US059507

PATIENT
  Age: 34 Year
  Sex: Male

DRUGS (2)
  1. SONIDEGIB [Suspect]
     Active Substance: SONIDEGIB
     Indication: MEDULLOBLASTOMA
     Dosage: UNK
     Route: 048
     Dates: start: 20181105
  2. KISQALI FEMARA CO-PACK [Suspect]
     Active Substance: LETROZOLE\RIBOCICLIB
     Indication: MEDULLOBLASTOMA
     Dosage: 400 MG
     Route: 048
     Dates: start: 20181105

REACTIONS (4)
  - Product use in unapproved indication [Unknown]
  - Medulloblastoma [Unknown]
  - Malignant neoplasm progression [Unknown]
  - Metastases to lung [Unknown]

NARRATIVE: CASE EVENT DATE: 20191115
